FAERS Safety Report 13402163 (Version 5)
Quarter: 2018Q3

REPORT INFORMATION
  Report Type: Spontaneous
  Country: IT (occurrence: IT)
  Receive Date: 20170404
  Receipt Date: 20180907
  Transmission Date: 20181010
  Serious: Yes (Hospitalization)
  Sender: FDA-Public Use
  Company Number: IT-PFIZER INC-2017143398

PATIENT
  Age: 76 Year
  Sex: Male

DRUGS (2)
  1. SERTRALINE HCL [Suspect]
     Active Substance: SERTRALINE HYDROCHLORIDE
     Dosage: 5 DF, TOTAL FOR ONE DAY
     Route: 048
  2. LITHIOFOR [Suspect]
     Active Substance: LITHIUM SULFATE
     Dosage: 10 DF, TOTAL FOR ONE DAY
     Route: 048

REACTIONS (4)
  - Overdose [Unknown]
  - Drug abuse [Unknown]
  - Toxicity to various agents [Unknown]
  - Morose [Unknown]

NARRATIVE: CASE EVENT DATE: 20170208
